FAERS Safety Report 7710406-0 (Version None)
Quarter: 2011Q3

REPORT INFORMATION
  Report Type: 
  Country: None (occurrence: None)
  Receive Date: 20110825
  Receipt Date: 20110810
  Transmission Date: 20111222
  Serious: Yes (Disabling)
  Sender: FDA-Public Use
  Company Number: US-ELI_LILLY_AND_COMPANY-US201107001420

PATIENT
  Sex: Female

DRUGS (9)
  1. FORTEO [Suspect]
     Indication: OSTEOPOROSIS
     Dosage: 20 UG, QD
     Dates: start: 20110621
  2. FORTEO [Suspect]
     Dosage: 20 UG, QD
     Dates: start: 20110708, end: 20110710
  3. FORTEO [Suspect]
     Dosage: 20 UG, QD
  4. HUMALOG MIX 75/25 [Suspect]
     Dosage: UNK, BID
  5. HUMALOG [Suspect]
     Indication: DIABETES MELLITUS
     Dosage: UNK, PRN
  6. LOTRIL                             /00574902/ [Concomitant]
  7. HUMALOG MIX 75/25 [Suspect]
     Indication: DIABETES MELLITUS
     Dosage: UNK, BID
     Dates: start: 20010101
  8. ZOCOR [Concomitant]
  9. INSULIN [Concomitant]
     Indication: TYPE 1 DIABETES MELLITUS

REACTIONS (23)
  - INJECTION SITE INFLAMMATION [None]
  - DIZZINESS [None]
  - NAUSEA [None]
  - DISCOMFORT [None]
  - ABASIA [None]
  - BLOOD GLUCOSE INCREASED [None]
  - TREMOR [None]
  - LIVER DISORDER [None]
  - RENAL DISORDER [None]
  - CRYING [None]
  - MALAISE [None]
  - INJECTION SITE ERYTHEMA [None]
  - ANGER [None]
  - MACULAR DEGENERATION [None]
  - DECREASED ACTIVITY [None]
  - DRUG INEFFECTIVE [None]
  - DIABETES MELLITUS [None]
  - BLOOD GLUCOSE FLUCTUATION [None]
  - BODY TEMPERATURE INCREASED [None]
  - GAIT DISTURBANCE [None]
  - FATIGUE [None]
  - ILL-DEFINED DISORDER [None]
  - VISION BLURRED [None]
